FAERS Safety Report 6903513-3 (Version None)
Quarter: 2010Q3

REPORT INFORMATION
  Report Type: 
  Country: None (occurrence: None)
  Receive Date: 20100803
  Receipt Date: 20081016
  Transmission Date: 20110219
  Serious: No
  Sender: FDA-Public Use
  Company Number: US-PFIZER INC-2008087812

PATIENT
  Sex: Female
  Weight: 71.21 kg

DRUGS (8)
  1. LYRICA [Suspect]
     Indication: FIBROMYALGIA
     Dates: start: 20080101
  2. LYRICA [Suspect]
     Indication: CONVULSION
  3. LYRICA [Suspect]
     Indication: NERVOUS SYSTEM DISORDER
  4. LIPITOR [Concomitant]
  5. KLONOPIN [Concomitant]
  6. PAXIL [Concomitant]
     Dates: end: 20081001
  7. LEVOTHYROXINE [Concomitant]
  8. PRILOSEC [Concomitant]

REACTIONS (2)
  - ABDOMINAL PAIN UPPER [None]
  - BLOOD GLUCOSE INCREASED [None]
